FAERS Safety Report 23788078 (Version 1)
Quarter: 2024Q2

REPORT INFORMATION
  Report Type: Spontaneous
  Country: US (occurrence: US)
  Receive Date: 20240426
  Receipt Date: 20240426
  Transmission Date: 20240716
  Serious: No
  Sender: FDA-Public Use
  Company Number: US-TARO PHARMACEUTICALS USA INC.-2023TAR00392

PATIENT
  Age: 85 Year
  Sex: Male
  Weight: 62.59 kg

DRUGS (1)
  1. FLUOROURACIL [Suspect]
     Active Substance: FLUOROURACIL
     Indication: Hyperkeratosis
     Dosage: UNK, BID, USED FOR 1 WEEK
     Route: 061
     Dates: start: 202202

REACTIONS (3)
  - Asthenia [Not Recovered/Not Resolved]
  - Expired product administered [Unknown]
  - Accidental exposure to product [Unknown]

NARRATIVE: CASE EVENT DATE: 20220201
